FAERS Safety Report 4884610-3 (Version None)
Quarter: 2005Q4

REPORT INFORMATION
  Report Type: 
  Country: None (occurrence: None)
  Receive Date: 20051201
  Receipt Date: 20050921
  Transmission Date: 20060501
  Serious: No
  Sender: FDA-Public Use
  Company Number: 2005PV002343

PATIENT
  Age: 46 Year
  Sex: Female
  Weight: 99.7913 kg

DRUGS (6)
  1. BYETTA [Suspect]
     Indication: DIABETES MELLITUS NON-INSULIN-DEPENDENT
     Dosage: 10  MCG; BID; SC; 5 MCG;QID; SC; 5 MCG; BID; SC
     Route: 058
     Dates: start: 20050810, end: 20050906
  2. BYETTA [Suspect]
     Indication: DIABETES MELLITUS NON-INSULIN-DEPENDENT
     Dosage: 10  MCG; BID; SC; 5 MCG;QID; SC; 5 MCG; BID; SC
     Route: 058
     Dates: start: 20050907, end: 20050920
  3. BYETTA [Suspect]
     Indication: DIABETES MELLITUS NON-INSULIN-DEPENDENT
     Dosage: 10  MCG; BID; SC; 5 MCG;QID; SC; 5 MCG; BID; SC
     Route: 058
     Dates: start: 20050921
  4. GLUCOPHAGE [Concomitant]
  5. STARLIX [Concomitant]
  6. ACTOS [Concomitant]

REACTIONS (3)
  - INJECTION SITE PRURITUS [None]
  - NAUSEA [None]
  - WEIGHT DECREASED [None]
